FAERS Safety Report 12326519 (Version 1)
Quarter: 2016Q2

REPORT INFORMATION
  Report Type: Spontaneous
  Country: US (occurrence: None)
  Receive Date: 20160502
  Receipt Date: 20160502
  Transmission Date: 20160815
  Serious: Yes (Other)
  Sender: FDA-Public Use
  Company Number: None

PATIENT
  Age: 17 Year
  Sex: Female
  Weight: 63.5 kg

DRUGS (8)
  1. QCO10 [Concomitant]
  2. MAGNESIUM [Concomitant]
     Active Substance: MAGNESIUM
  3. OMEGA 3 [Concomitant]
     Active Substance: OMEGA-3 FATTY ACIDS
  4. ZINC [Concomitant]
     Active Substance: ZINC\ZINC CHLORIDE
  5. MULTI-MINERAL [Concomitant]
  6. B2 [Concomitant]
  7. MULTI-VITAMIN [Concomitant]
     Active Substance: .ALPHA.-TOCOPHEROL ACETATE, DL-\ASCORBIC ACID\CYANOCOBALAMIN\FLUORIDE ION\FOLIC ACID\NIACIN\PYRIDOXINE\RIBOFLAVIN\THIAMINE\VITAMIN A\VITAMIN D
  8. PROPRANOLOL [Suspect]
     Active Substance: PROPRANOLOL\PROPRANOLOL HYDROCHLORIDE
     Indication: MIGRAINE
     Route: 048
     Dates: start: 20160127, end: 20160416

REACTIONS (1)
  - Alopecia [None]

NARRATIVE: CASE EVENT DATE: 20160413
